FAERS Safety Report 6144947-7 (Version None)
Quarter: 2009Q2

REPORT INFORMATION
  Report Type: 
  Country: None (occurrence: None)
  Receive Date: 20090406
  Receipt Date: 20090402
  Transmission Date: 20091009
  Serious: Yes (Other)
  Sender: FDA-Public Use
  Company Number: CA-ROXANE LABORATORIES, INC.-2009-RO-00326RO

PATIENT
  Age: 52 Year
  Sex: Male

DRUGS (14)
  1. DEXAMETHASONE [Suspect]
     Indication: EYE OEDEMA
  2. DEXAMETHASONE [Suspect]
     Indication: CORNEAL DISORDER
  3. STEROID [Suspect]
     Indication: KERATOMILEUSIS
  4. STEROID [Suspect]
  5. FLUOROQUINOLONE [Suspect]
     Indication: KERATOMILEUSIS
  6. MOXIFLOXACIN HCL [Suspect]
     Indication: EYE OEDEMA
  7. MOXIFLOXACIN HCL [Suspect]
     Indication: CORNEAL DISORDER
  8. LATANOPROST [Suspect]
     Indication: EYE OEDEMA
  9. LATANOPROST [Suspect]
     Indication: CORNEAL DISORDER
  10. DORZOLAMIDE HCL AND TIMOLOL MALEATE [Suspect]
     Indication: EYE OEDEMA
  11. DORZOLAMIDE HCL AND TIMOLOL MALEATE [Suspect]
     Indication: CORNEAL DISORDER
  12. FLUOROMETHOLONE [Concomitant]
  13. BRIMONIDINE TARTRATE [Concomitant]
  14. DORZOLAMIDE [Concomitant]

REACTIONS (1)
  - KERATITIS [None]
